FAERS Safety Report 8825049 (Version 1)
Quarter: 2012Q4

REPORT INFORMATION
  Report Type: 
  Country: HU (occurrence: HU)
  Receive Date: 20121004
  Receipt Date: 20121004
  Transmission Date: 20130627
  Serious: Yes (Death)
  Sender: FDA-Public Use
  Company Number: PHHY2012HU085996

PATIENT
  Sex: Female

DRUGS (5)
  1. ONBREZ [Suspect]
     Indication: CHRONIC OBSTRUCTIVE PULMONARY DISEASE
     Dosage: 150 ug, daily dose
     Dates: start: 20120712
  2. FUROSEMIDE [Concomitant]
     Dosage: UNK
  3. POTASSIUM [Concomitant]
  4. TENSIOMIN [Concomitant]
  5. BETALOC [Concomitant]

REACTIONS (1)
  - Death [Fatal]
